FAERS Safety Report 14108176 (Version 1)
Quarter: 2017Q4

REPORT INFORMATION
  Report Type: Other
  Country: US (occurrence: NL)
  Receive Date: 20171019
  Receipt Date: 20171019
  Transmission Date: 20180321
  Serious: Yes (Death)
  Sender: FDA-Public Use
  Company Number: NL-BRECKENRIDGE PHARMACEUTICAL, INC.-2030747

PATIENT
  Age: 77 Year
  Sex: Female

DRUGS (4)
  1. POLYETHYLENE GLYCOL [Suspect]
     Active Substance: POLYETHYLENE GLYCOLS
  2. DIGOXIN. [Concomitant]
     Active Substance: DIGOXIN
  3. B-BLOCKER [Concomitant]
     Active Substance: UNSPECIFIED INGREDIENT
  4. VITAMIN K ANTAGONIST [Concomitant]

REACTIONS (3)
  - Circulatory collapse [Fatal]
  - Hypokalaemia [Fatal]
  - Metabolic acidosis [Fatal]
